FAERS Safety Report 5887190-9 (Version None)
Quarter: 2008Q3

REPORT INFORMATION
  Report Type: 
  Country: None (occurrence: None)
  Receive Date: 20080917
  Receipt Date: 20080905
  Transmission Date: 20090109
  Serious: Yes (Other)
  Sender: FDA-Public Use
  Company Number: JP-PFIZER INC-2008076411

PATIENT
  Age: 56 Year
  Sex: Female

DRUGS (4)
  1. CAMPTOSAR [Suspect]
     Indication: LARGE INTESTINE CARCINOMA
     Dosage: DAILY DOSE:225MG
     Dates: start: 20080807, end: 20080902
  2. FLUOROURACIL [Suspect]
     Indication: LARGE INTESTINE CARCINOMA
     Dosage: DAILY DOSE:600MG
     Dates: start: 20080807
  3. FLUOROURACIL [Suspect]
     Dosage: DAILY DOSE:3600MG
     Dates: end: 20080902
  4. LEUCOVORIN CALCIUM [Concomitant]
     Indication: LARGE INTESTINE CARCINOMA
     Dosage: DAILY DOSE:300MG
     Dates: start: 20080807, end: 20080902

REACTIONS (1)
  - LOSS OF CONSCIOUSNESS [None]
